FAERS Safety Report 19831883 (Version 1)
Quarter: 2021Q3

REPORT INFORMATION
  Report Type: Spontaneous
  Country: DE (occurrence: DE)
  Receive Date: 20210915
  Receipt Date: 20210915
  Transmission Date: 20211014
  Serious: Yes (Hospitalization, Other)
  Sender: FDA-Public Use
  Company Number: DE-ORGANON-O2109DEU000535

PATIENT
  Age: 58 Year
  Sex: Male
  Weight: 107 kg

DRUGS (6)
  1. AMANTADINE. [Suspect]
     Active Substance: AMANTADINE HYDROCHLORIDE
     Dosage: 100 MG, 1?1?1?0, TABLET
     Route: 048
  2. REQUIP XL [Concomitant]
     Active Substance: ROPINIROLE HYDROCHLORIDE
     Dosage: 8 MG, 1?0?0?0, SUSTAINED?RELEASE TABLETS
     Route: 048
  3. REQUIP XL [Concomitant]
     Active Substance: ROPINIROLE HYDROCHLORIDE
     Dosage: 4 MG, 0?1?0?0, SUSTAINED?RELEASE TABLETS
     Route: 048
  4. CARBIDOPA (+) LEVODOPA [Suspect]
     Active Substance: CARBIDOPA\LEVODOPA
     Dosage: 25/100 MG, 0.5?0.5?0.5?0.5, TABLET
     Route: 048
  5. CARBIDOPA (+) LEVODOPA [Suspect]
     Active Substance: CARBIDOPA\LEVODOPA
     Dosage: 25/100 MG, 1?1?1?1, SUSTAINED?RELEASE TABLETS, FORMULATION REPORTED AS PROLONGED?RELEASE TABLET
     Route: 048
  6. CLOPIDOGREL [Concomitant]
     Active Substance: CLOPIDOGREL BISULFATE
     Dosage: 75 MG, TABLET
     Route: 048

REACTIONS (5)
  - Atrial fibrillation [Unknown]
  - Hypertension [Unknown]
  - Chest discomfort [Unknown]
  - Apnoea [Unknown]
  - Dyspnoea exertional [Unknown]
